FAERS Safety Report 7558106-4 (Version None)
Quarter: 2011Q2

REPORT INFORMATION
  Report Type: 
  Country: None (occurrence: None)
  Receive Date: 20110620
  Receipt Date: 20110610
  Transmission Date: 20111010
  Serious: Yes (Other)
  Sender: FDA-Public Use
  Company Number: US-PURDUE-USA-2011-0070221

PATIENT
  Sex: Male

DRUGS (4)
  1. METHADONE HCL [Suspect]
     Indication: ACCIDENTAL EXPOSURE
  2. DIAZEPAM [Suspect]
     Indication: ACCIDENTAL EXPOSURE
  3. OXYCODONE HCL [Suspect]
     Indication: ACCIDENTAL EXPOSURE
  4. HYDROMORPHONE HCL [Suspect]
     Indication: ACCIDENTAL EXPOSURE

REACTIONS (1)
  - ACCIDENTAL EXPOSURE [None]
